FAERS Safety Report 25328262 (Version 1)
Quarter: 2025Q2

REPORT INFORMATION
  Report Type: Report from Study
  Country: MX (occurrence: MX)
  Receive Date: 20250518
  Receipt Date: 20250518
  Transmission Date: 20250716
  Serious: Yes (Death)
  Sender: ABBVIE
  Company Number: MX-ABBVIE-6282261

PATIENT
  Age: 77 Year
  Sex: Male
  Weight: 78 kg

DRUGS (4)
  1. VENCLEXTA [Suspect]
     Active Substance: VENETOCLAX
     Indication: Chronic lymphocytic leukaemia
     Dosage: FORM STRENGTH: 100 MILLIGRAM
     Route: 048
     Dates: start: 20241129, end: 202504
  2. DAPAGLIFLOZIN [Concomitant]
     Active Substance: DAPAGLIFLOZIN
     Indication: Diabetes mellitus
     Route: 048
  3. HYDROCORTISONE [Concomitant]
     Active Substance: HYDROCORTISONE
     Indication: Prophylactic chemotherapy
     Route: 042
  4. LOSARTAN [Concomitant]
     Active Substance: LOSARTAN
     Indication: Hypertension
     Route: 048

REACTIONS (13)
  - Hepatic neoplasm [Fatal]
  - Thrombocytopenia [Recovering/Resolving]
  - Gastritis [Not Recovered/Not Resolved]
  - Metastases to peritoneum [Fatal]
  - Abdominal distension [Unknown]
  - Hypophagia [Unknown]
  - Platelet count decreased [Unknown]
  - Weight decreased [Unknown]
  - Condition aggravated [Unknown]
  - Abdominal discomfort [Unknown]
  - Drug intolerance [Unknown]
  - Internal haemorrhage [Fatal]
  - Colitis [Unknown]

NARRATIVE: CASE EVENT DATE: 20241201
